FAERS Safety Report 4398363-9 (Version None)
Quarter: 2004Q3

REPORT INFORMATION
  Report Type: 
  Country: None (occurrence: None)
  Receive Date: 20040714
  Receipt Date: 20040714
  Transmission Date: 20050211
  Serious: Yes (Other)
  Sender: FDA-Public Use
  Company Number: None

PATIENT
  Age: 22 Year
  Sex: Female
  Weight: 43.9989 kg

DRUGS (2)
  1. DURAGESIC [Suspect]
     Indication: ABDOMINAL PAIN
     Dosage: 75 MCG/72 HOURS ;25 MCG/72 HOURS
  2. DURAGESIC [Suspect]
     Indication: IMPAIRED GASTRIC EMPTYING
     Dosage: 75 MCG/72 HOURS ;25 MCG/72 HOURS

REACTIONS (3)
  - MEDICATION ERROR [None]
  - PAIN EXACERBATED [None]
  - PHARMACEUTICAL PRODUCT COMPLAINT [None]
